FAERS Safety Report 5141771-9 (Version None)
Quarter: 2007Q1

REPORT INFORMATION
  Report Type: 
  Country: None (occurrence: None)
  Receive Date: 20061027
  Receipt Date: 20061012
  Transmission Date: 20070707
  Serious: Yes (Hospitalization, Other)
  Sender: FDA-Public Use
  Company Number: GB200608000651

PATIENT
  Age: 49 Year
  Sex: Female
  Weight: 143 kg

DRUGS (5)
  1. PEMETREXED (PEMETREXED) [Suspect]
     Dates: start: 20060526
  2. PEMETREXED (PEMETREXED) [Suspect]
     Dates: start: 20060623
  3. PEMETREXED (PEMETREXED) [Suspect]
     Dates: start: 20060714
  4. PEMETREXED (PEMETREXED) [Suspect]
     Dates: start: 20060811
  5. CISPLATIN [Concomitant]

REACTIONS (1)
  - BLOOD MAGNESIUM DECREASED [None]
